FAERS Safety Report 10186740 (Version 2)
Quarter: 2014Q2

REPORT INFORMATION
  Report Type: Spontaneous
  Country: JP (occurrence: JP)
  Receive Date: 20140521
  Receipt Date: 20140619
  Transmission Date: 20141212
  Serious: Yes (Death)
  Sender: FDA-Public Use
  Company Number: PHJP2014JP000795

PATIENT
  Age: 76 Year
  Sex: Female

DRUGS (2)
  1. TEGRETOL TAB 200MG [Suspect]
     Indication: EPILEPSY
     Dosage: UNK UKN, UNK
     Route: 048
  2. PLAVIX [Suspect]
     Indication: PERIPHERAL ARTERIAL OCCLUSIVE DISEASE
     Route: 048

REACTIONS (7)
  - Toxic epidermal necrolysis [Fatal]
  - Pruritus generalised [Fatal]
  - Dermatitis exfoliative [Fatal]
  - Drug-induced liver injury [Fatal]
  - Hepatic failure [Fatal]
  - Pyrexia [Fatal]
  - Hepatic function abnormal [Fatal]
